FAERS Safety Report 8243848-8 (Version None)
Quarter: 2012Q1

REPORT INFORMATION
  Report Type: 
  Country: None (occurrence: None)
  Receive Date: 20120316
  Receipt Date: 20101013
  Transmission Date: 20120608
  Serious: Yes (Other)
  Sender: FDA-Public Use
  Company Number: PHHY2010US59245

PATIENT
  Age: 53 Year
  Sex: Female

DRUGS (2)
  1. EXTAVIA [Suspect]
     Indication: MULTIPLE SCLEROSIS
     Dosage: 0.062 MG, QOD, SUBCUTANEOUS
     Route: 058
     Dates: start: 20100829
  2. IBUPROFEN [Concomitant]

REACTIONS (10)
  - FEELING ABNORMAL [None]
  - MYALGIA [None]
  - CONSTIPATION [None]
  - CHILLS [None]
  - HYPOAESTHESIA [None]
  - DEPRESSION [None]
  - NAUSEA [None]
  - INJECTION SITE HAEMATOMA [None]
  - PAIN IN EXTREMITY [None]
  - PAIN [None]
